FAERS Safety Report 7297533-X (Version None)
Quarter: 2011Q1

REPORT INFORMATION
  Report Type: 
  Country: None (occurrence: None)
  Receive Date: 20110204
  Receipt Date: 20110131
  Transmission Date: 20110831
  Serious: Yes (Death)
  Sender: FDA-Public Use
  Company Number: 2010SP055536

PATIENT
  Age: 4 Year
  Sex: Female
  Weight: 17.1 kg

DRUGS (15)
  1. GASMOTIN [Concomitant]
  2. GASTER [Concomitant]
  3. MAGNESIUM OXIDE [Concomitant]
  4. TEMODAL [Suspect]
     Indication: ANAPLASTIC ASTROCYTOMA
     Dosage: SEE IMAGE
     Route: 048
     Dates: start: 20090903, end: 20090907
  5. TEMODAL [Suspect]
     Indication: ANAPLASTIC ASTROCYTOMA
     Dosage: SEE IMAGE
     Route: 048
     Dates: start: 20091008, end: 20091012
  6. TEMODAL [Suspect]
     Indication: ANAPLASTIC ASTROCYTOMA
     Dosage: SEE IMAGE
     Route: 048
     Dates: start: 20090818, end: 20090822
  7. TEMODAL [Suspect]
     Indication: ANAPLASTIC ASTROCYTOMA
     Dosage: SEE IMAGE
     Route: 048
     Dates: start: 20091209, end: 20091213
  8. TEMODAL [Suspect]
     Indication: ANAPLASTIC ASTROCYTOMA
     Dosage: SEE IMAGE
     Route: 048
     Dates: start: 20090107, end: 20090107
  9. TEMODAL [Suspect]
     Indication: ANAPLASTIC ASTROCYTOMA
     Dosage: SEE IMAGE
     Route: 048
     Dates: start: 20091105, end: 20091109
  10. TEMODAL [Suspect]
     Indication: ANAPLASTIC ASTROCYTOMA
     Dosage: SEE IMAGE
     Route: 048
     Dates: start: 20091223, end: 20091227
  11. RNDERON (BETAMETHASONE) [Concomitant]
  12. LAXOBERON [Concomitant]
  13. MUCOSOLVAN [Concomitant]
  14. LANSOPRAZOLE [Concomitant]
  15. MUCODYNE [Concomitant]

REACTIONS (3)
  - DISEASE PROGRESSION [None]
  - ANAPLASTIC ASTROCYTOMA [None]
  - WHITE BLOOD CELL COUNT DECREASED [None]
